FAERS Safety Report 18476364 (Version 2)
Quarter: 2020Q4

REPORT INFORMATION
  Report Type: Spontaneous
  Country: US (occurrence: US)
  Receive Date: 20201106
  Receipt Date: 20201111
  Transmission Date: 20210114
  Serious: Yes (Death)
  Sender: FDA-Public Use
  Company Number: US-PFIZER INC-2020431146

PATIENT
  Age: 69 Year
  Sex: Female
  Weight: 107.05 kg

DRUGS (1)
  1. IBRANCE [Suspect]
     Active Substance: PALBOCICLIB
     Indication: BREAST CANCER METASTATIC
     Dosage: 125 MG, CYCLIC (TAKE ONCE DAILY FOR 21 DAYS AND 7 DAYS OFF)
     Dates: start: 202009

REACTIONS (1)
  - Neoplasm progression [Fatal]
